FAERS Safety Report 23087384 (Version 1)
Quarter: 2023Q4

REPORT INFORMATION
  Report Type: Spontaneous
  Country: US (occurrence: US)
  Receive Date: 20231020
  Receipt Date: 20231020
  Transmission Date: 20240109
  Serious: No
  Sender: FDA-Public Use
  Company Number: US-SA-SAC20231017000222

PATIENT
  Age: 11 Year
  Sex: Female

DRUGS (1)
  1. DUPIXENT [Suspect]
     Active Substance: DUPILUMAB
     Indication: Eczema
     Dosage: DOSE: 300MG/2ML FREQUENCY: INJ 300MG 1Y SQ Q2W
     Route: 058
     Dates: start: 202209

REACTIONS (2)
  - Nasopharyngitis [Unknown]
  - Illness [Unknown]
